FAERS Safety Report 6436478-1 (Version None)
Quarter: 2009Q4

REPORT INFORMATION
  Report Type: 
  Country: None (occurrence: None)
  Receive Date: 20091111
  Receipt Date: 20091020
  Transmission Date: 20100525
  Serious: Yes (Other)
  Sender: FDA-Public Use
  Company Number: GB-ROCHE-648846

PATIENT
  Age: 28 Year
  Sex: Female

DRUGS (6)
  1. TAMIFLU [Suspect]
     Indication: H1N1 INFLUENZA
     Dosage: DOSE NOT REPORTED.
     Route: 065
     Dates: start: 20090710, end: 20090714
  2. MODAFINIL [Concomitant]
     Indication: SLEEP DISORDER
  3. ETHINYL ESTRADIOL AND NORETHINDRONE [Concomitant]
     Dosage: CONTRACEPTIVE PILL
  4. CETRIZINE [Concomitant]
     Indication: URTICARIA
  5. CO-DYDRAMOL [Concomitant]
  6. DICLOFENAC [Concomitant]

REACTIONS (4)
  - DEPRESSED MOOD [None]
  - MOOD SWINGS [None]
  - SUICIDAL IDEATION [None]
  - URTICARIA [None]
